FAERS Safety Report 8343996-8 (Version None)
Quarter: 2012Q2

REPORT INFORMATION
  Report Type: 
  Country: None (occurrence: None)
  Receive Date: 20120508
  Receipt Date: 20120423
  Transmission Date: 20120825
  Serious: Yes (Other)
  Sender: FDA-Public Use
  Company Number: US-ENDO PHARMACEUTICALS INC.-OPCR20120415

PATIENT
  Sex: Male

DRUGS (2)
  1. OPANA ER [Concomitant]
     Route: 048
     Dates: end: 20120101
  2. OPANA ER [Suspect]
     Indication: PAIN
     Route: 048
     Dates: start: 20120101

REACTIONS (2)
  - DRUG INEFFECTIVE [None]
  - INTENTIONAL DRUG MISUSE [None]
